FAERS Safety Report 12191077 (Version 2)
Quarter: 2016Q2

REPORT INFORMATION
  Report Type: Report from Study
  Country: DE (occurrence: DE)
  Receive Date: 20160318
  Receipt Date: 20160412
  Transmission Date: 20160815
  Serious: Yes (Hospitalization)
  Sender: FDA-Public Use
  Company Number: DE-BIOGEN-2016BI00202016

PATIENT
  Age: 52 Year
  Sex: Female
  Weight: 62 kg

DRUGS (3)
  1. PANTOZOL [Concomitant]
     Active Substance: PANTOPRAZOLE SODIUM
     Indication: PROPHYLAXIS
     Route: 065
     Dates: start: 20160223, end: 20160225
  2. TEMISARTAN [Concomitant]
     Indication: HYPERTENSION
     Route: 048
     Dates: start: 201602
  3. TECFIDERA [Suspect]
     Active Substance: DIMETHYL FUMARATE
     Indication: MULTIPLE SCLEROSIS
     Route: 048
     Dates: start: 20150805

REACTIONS (2)
  - Hypertension [Recovered/Resolved]
  - Fat tissue increased [Recovered/Resolved]

NARRATIVE: CASE EVENT DATE: 201511
